FAERS Safety Report 15154146 (Version 1)
Quarter: 2018Q3

REPORT INFORMATION
  Report Type: Report from Study
  Country: US (occurrence: US)
  Receive Date: 20180717
  Receipt Date: 20180717
  Transmission Date: 20181010
  Serious: Yes (Hospitalization, Other)
  Sender: FDA-Public Use
  Company Number: US-ROCHE-2153458

PATIENT
  Sex: Female

DRUGS (6)
  1. ARIMIDEX [Concomitant]
     Active Substance: ANASTROZOLE
  2. DOCETAXEL. [Suspect]
     Active Substance: DOCETAXEL
     Indication: BREAST CANCER
     Route: 065
  3. DAUNORUBICIN [Concomitant]
     Active Substance: DAUNORUBICIN
     Route: 065
     Dates: start: 20170816
  4. CARBOPLATIN. [Suspect]
     Active Substance: CARBOPLATIN
     Indication: BREAST CANCER
     Route: 065
  5. HERCEPTIN [Suspect]
     Active Substance: TRASTUZUMAB
     Indication: BREAST CANCER
     Route: 065
  6. DECITABINE. [Concomitant]
     Active Substance: DECITABINE

REACTIONS (5)
  - Febrile neutropenia [Unknown]
  - Pancytopenia [Unknown]
  - Weight decreased [Unknown]
  - Oesophageal candidiasis [Unknown]
  - Dyspnoea [Unknown]
